FAERS Safety Report 19040647 (Version 1)
Quarter: 2021Q1

REPORT INFORMATION
  Report Type: Spontaneous
  Country: US (occurrence: US)
  Receive Date: 20210322
  Receipt Date: 20210322
  Transmission Date: 20210420
  Serious: Yes (Disabling)
  Sender: FDA-Public Use
  Company Number: US-PFIZER INC-2021269456

PATIENT
  Age: 64 Year
  Sex: Female
  Weight: 104 kg

DRUGS (23)
  1. POMALYST [Suspect]
     Active Substance: POMALIDOMIDE
     Dosage: 2 MG, CYCLIC(1 IN 28 D)
     Route: 048
     Dates: start: 20201002, end: 20201118
  2. RETACRIT [Suspect]
     Active Substance: EPOETIN ALFA-EPBX
     Dosage: UNK
  3. NORVASC [Concomitant]
     Active Substance: AMLODIPINE BESYLATE
     Indication: BLOOD PRESSURE MEASUREMENT
     Dosage: 5 MG, 1X/DAY(1 IN 1D)
     Route: 048
  4. FAMOTIDINE. [Concomitant]
     Active Substance: FAMOTIDINE
     Dosage: 100 MG, 1X/DAY(1 IN 1D)
     Route: 048
  5. DEXAMETHASONE. [Concomitant]
     Active Substance: DEXAMETHASONE
     Dosage: UNK
     Route: 048
     Dates: start: 202007
  6. VELCADE [Concomitant]
     Active Substance: BORTEZOMIB
     Dosage: UNK
     Dates: start: 201911
  7. NINLARO [Concomitant]
     Active Substance: IXAZOMIB CITRATE
     Dosage: UNK
     Dates: start: 202004, end: 202005
  8. PEPCID [Concomitant]
     Active Substance: FAMOTIDINE
     Indication: ABDOMINAL PAIN UPPER
     Dosage: 20 MG, 1X/DAY(1 IN 1D)
     Route: 048
  9. POMALYST [Suspect]
     Active Substance: POMALIDOMIDE
     Dosage: 2 MG, CYCLIC(14/21)
     Route: 048
     Dates: start: 20201216
  10. PERCOCET [Concomitant]
     Active Substance: ACETAMINOPHEN\OXYCODONE HYDROCHLORIDE
     Indication: PAIN
     Dosage: UNK(5/325,1 IN 6 HR)
     Route: 048
  11. MIRTAZAPINE. [Concomitant]
     Active Substance: MIRTAZAPINE
     Dosage: 15 MG, 1X/DAY(1 IN 1D)
     Route: 048
  12. DEXAMETHASONE. [Concomitant]
     Active Substance: DEXAMETHASONE
     Dosage: UNK
     Route: 048
     Dates: start: 201911
  13. DARZALEX [Concomitant]
     Active Substance: DARATUMUMAB
     Dosage: UNK(DAY 1,8,15,22)
  14. POMALYST [Suspect]
     Active Substance: POMALIDOMIDE
     Indication: PLASMA CELL MYELOMA
     Dosage: 2 MG, CYCLIC(21 IN 28 D )
     Route: 048
     Dates: start: 20190604
  15. EPOETIN ALFA [Concomitant]
     Active Substance: ERYTHROPOIETIN
     Dosage: UNK UNK, 1X/DAY(15000 UNITS,1 IN 1D )
     Route: 058
  16. LIDODERM [Concomitant]
     Active Substance: LIDOCAINE
     Dosage: 5 %, 1X/DAY(1 IN 1 D)
     Route: 061
  17. DARZALEX [Concomitant]
     Active Substance: DARATUMUMAB
     Dosage: UNK(DAY 1,8,15,22)
  18. ATIVAN [Concomitant]
     Active Substance: LORAZEPAM
     Dosage: 20 MG, 1X/DAY(1 IN 1D)
     Route: 048
  19. KYPROLIS [Concomitant]
     Active Substance: CARFILZOMIB
     Dosage: UNK
     Dates: start: 20200310
  20. ELOTUZUMAB. [Concomitant]
     Active Substance: ELOTUZUMAB
     Dosage: UNK
     Dates: start: 202007
  21. POMALYST [Suspect]
     Active Substance: POMALIDOMIDE
     Dosage: 2 MG, CYCLIC(21 IN 28 D )
     Route: 048
     Dates: start: 202009, end: 202010
  22. XGEVA [Concomitant]
     Active Substance: DENOSUMAB
     Dosage: UNK
     Dates: start: 201911
  23. GABAPENTIN. [Concomitant]
     Active Substance: GABAPENTIN
     Indication: NEUROPATHY PERIPHERAL
     Dosage: 100 MG, 1X/DAY(1 IN 1D)
     Route: 048

REACTIONS (6)
  - Injection site pain [Unknown]
  - Abdominal pain [Recovering/Resolving]
  - Dizziness [Unknown]
  - Asthenia [Unknown]
  - Anaemia [Not Recovered/Not Resolved]
  - Treatment noncompliance [Unknown]

NARRATIVE: CASE EVENT DATE: 20201216
